FAERS Safety Report 6187765-6 (Version None)
Quarter: 2009Q2

REPORT INFORMATION
  Report Type: 
  Country: None (occurrence: None)
  Receive Date: 20090513
  Receipt Date: 20090430
  Transmission Date: 20091009
  Serious: Yes (Life-Threatening, Hospitalization)
  Sender: FDA-Public Use
  Company Number: DE-RANBAXY-2009RR-22349

PATIENT
  Age: 54 Year
  Sex: Male
  Weight: 78 kg

DRUGS (12)
  1. BISOPROLOL [Suspect]
     Indication: CORONARY ARTERY DISEASE
     Dosage: 5 MG, BID
     Route: 048
  2. RAMIPRIL [Suspect]
     Indication: HYPERTENSION
     Dosage: 5 MG, SINGLE
     Route: 048
  3. FALITHROM ^HEXAL^ [Suspect]
     Indication: THROMBOSIS PROPHYLAXIS
     Dosage: 3 MG, UNK
     Route: 048
     Dates: start: 20080819
  4. FURORESE [Suspect]
     Indication: RENAL IMPAIRMENT
     Dosage: 40 MG, QD
     Route: 048
     Dates: end: 20080821
  5. HYDROCHLOROTHIAZIDE [Suspect]
     Indication: HYPERTENSION
     Dosage: 25 MG, QD
     Route: 048
     Dates: end: 20080821
  6. BEROTEC [Concomitant]
     Indication: CHRONIC OBSTRUCTIVE PULMONARY DISEASE
     Route: 055
  7. NEURONTIN [Concomitant]
     Indication: POLYNEUROPATHY ALCOHOLIC
     Dosage: 600 MG, TID
     Route: 048
  8. PANTOZOL [Concomitant]
     Indication: PROPHYLAXIS AGAINST GASTROINTESTINAL ULCER
     Dosage: 40 MG, QD
     Route: 048
  9. PREGABALIN [Concomitant]
     Indication: POLYNEUROPATHY ALCOHOLIC
     Dosage: 50 MG, TID
     Route: 048
  10. SIFROL [Concomitant]
     Indication: POLYNEUROPATHY ALCOHOLIC
     Dosage: 0.18 MG, QD
     Route: 048
  11. SIMVASTATIN [Concomitant]
     Indication: CORONARY ARTERY DISEASE
     Dosage: 20 MG, SINGLE
     Route: 048
  12. SPIRIVA [Concomitant]
     Indication: CHRONIC OBSTRUCTIVE PULMONARY DISEASE
     Dosage: 1 DF, QD
     Route: 055

REACTIONS (2)
  - DEHYDRATION [None]
  - INTERNATIONAL NORMALISED RATIO INCREASED [None]
